FAERS Safety Report 16722548 (Version 2)
Quarter: 2019Q3

REPORT INFORMATION
  Report Type: Spontaneous
  Country: US (occurrence: US)
  Receive Date: 20190820
  Receipt Date: 20190926
  Transmission Date: 20191005
  Serious: Yes (Hospitalization, Other)
  Sender: FDA-Public Use
  Company Number: US-IGSA-SR10008907

PATIENT
  Age: 57 Year
  Sex: Male
  Weight: 102.5 kg

DRUGS (6)
  1. ASPIRIN                            /00002701/ [Concomitant]
     Active Substance: ASPIRIN
     Dosage: 81 G, UNK
  2. GAMUNEX-C [Suspect]
     Active Substance: HUMAN IMMUNOGLOBULIN G
     Indication: MULTIFOCAL MOTOR NEUROPATHY
     Dosage: 60 G, QD
     Route: 042
     Dates: start: 20190721, end: 20190722
  3. BISOPROLOL FUMERATE [Concomitant]
     Active Substance: BISOPROLOL FUMARATE
     Dosage: 10 MG, UNK
  4. PAROXETINE. [Concomitant]
     Active Substance: PAROXETINE
     Dosage: 20 MG, UNK
  5. APAP [Concomitant]
     Active Substance: ACETAMINOPHEN
     Indication: PREMEDICATION
     Dosage: UNK
     Dates: start: 20190721
  6. ROSUVASTATIN. [Concomitant]
     Active Substance: ROSUVASTATIN
     Dosage: 20 MG, UNK

REACTIONS (3)
  - Rash [Recovered/Resolved]
  - Urticaria [Recovered/Resolved]
  - Lip swelling [Recovered/Resolved]

NARRATIVE: CASE EVENT DATE: 20190721
